FAERS Safety Report 8861842 (Version 2)
Quarter: 2013Q1

REPORT INFORMATION
  Report Type: Spontaneous
  Country: IT (occurrence: None)
  Receive Date: 20121023
  Receipt Date: 20121106
  Transmission Date: 20140127
  Serious: Yes (Hospitalization)
  Sender: FDA-Public Use
  Company Number: DSM-2012-01111

PATIENT
  Age: 74 Year
  Sex: Female

DRUGS (4)
  1. OLMETEC [Suspect]
     Indication: HYPERTENSION
     Route: 048
     Dates: start: 20100101, end: 20120906
  2. ATENOLOL [Suspect]
     Indication: HYPERTENSION
     Route: 048
     Dates: start: 20100101, end: 20120906
  3. TRIATEC [Suspect]
     Indication: HYPERTENSION
     Route: 048
     Dates: start: 20100101, end: 20120906
  4. BICARBONATE SODIUM (SODIUM BICARBONATE) [Concomitant]

REACTIONS (11)
  - Jaundice [None]
  - Blood alkaline phosphatase increased [None]
  - Erythema [None]
  - Alanine aminotransferase increased [None]
  - Aspartate aminotransferase increased [None]
  - Blood bilirubin increased [None]
  - Bilirubin conjugated increased [None]
  - Blood creatinine increased [None]
  - Gamma-glutamyltransferase increased [None]
  - Protein C increased [None]
  - Skin lesion [None]
